FAERS Safety Report 24385949 (Version 4)
Quarter: 2024Q4

REPORT INFORMATION
  Report Type: Other
  Country: US (occurrence: US)
  Receive Date: 20241001
  Receipt Date: 20241226
  Transmission Date: 20250115
  Serious: Yes (Hospitalization, Other)
  Sender: TRAVERE THERAPEUTICS
  Company Number: US-TRAVERE-2024TVT00970

PATIENT
  Age: 68 Year
  Sex: Female

DRUGS (2)
  1. FILSPARI [Suspect]
     Active Substance: SPARSENTAN
     Indication: IgA nephropathy
     Route: 048
     Dates: start: 20240907, end: 20240911
  2. FILSPARI [Suspect]
     Active Substance: SPARSENTAN
     Route: 048
     Dates: start: 20240916, end: 20240920

REACTIONS (9)
  - Blood creatinine increased [Recovering/Resolving]
  - Liver function test increased [Recovering/Resolving]
  - Blood urea increased [Recovering/Resolving]
  - Hospitalisation [Unknown]
  - Abdominal pain upper [Unknown]
  - Autoimmune disorder [Unknown]
  - Aspartate aminotransferase abnormal [Unknown]
  - Alanine aminotransferase abnormal [Unknown]
  - Urinary tract infection bacterial [Unknown]
